FAERS Safety Report 9768667 (Version 1)
Quarter: 2013Q4

REPORT INFORMATION
  Report Type: Spontaneous
  Country: FR (occurrence: FR)
  Receive Date: 20131218
  Receipt Date: 20131218
  Transmission Date: 20140711
  Serious: Yes (Hospitalization)
  Sender: FDA-Public Use
  Company Number: FR-ROCHE-1321407

PATIENT
  Age: 18 Year
  Sex: Female

DRUGS (9)
  1. TAMIFLU [Suspect]
     Indication: PRODUCT USED FOR UNKNOWN INDICATION
     Route: 048
     Dates: start: 20131122, end: 20131127
  2. BI-PROFENID [Concomitant]
  3. INEXIUM [Concomitant]
     Route: 065
     Dates: start: 20131121
  4. PRIMPERAN (FRANCE) [Concomitant]
     Dosage: AMPOULE
     Route: 065
     Dates: start: 20131123
  5. PRIMPERAN (FRANCE) [Concomitant]
     Route: 048
     Dates: start: 20131127
  6. PERFALGAN [Concomitant]
     Route: 065
     Dates: start: 20131121, end: 20131123
  7. TOPALGIC (FRANCE) [Concomitant]
     Route: 065
     Dates: start: 20131121
  8. ACUPAN [Concomitant]
     Dosage: 1 AMPOULE.
     Route: 065
     Dates: start: 20131123
  9. ZOPHREN [Concomitant]
     Route: 065
     Dates: start: 20131125, end: 20131127

REACTIONS (1)
  - Hepatocellular injury [Recovering/Resolving]
